FAERS Safety Report 9720652 (Version 3)
Quarter: 2013Q4

REPORT INFORMATION
  Report Type: Spontaneous
  Country: DE (occurrence: DE)
  Receive Date: 20131129
  Receipt Date: 20131206
  Transmission Date: 20140711
  Serious: Yes (Hospitalization, Disabling)
  Sender: FDA-Public Use
  Company Number: PHHY2013DE075942

PATIENT
  Sex: Male

DRUGS (5)
  1. LAMPRENE [Suspect]
     Indication: MELKERSSON-ROSENTHAL SYNDROME
     Dosage: 100 MG, QD
     Route: 048
     Dates: start: 1986, end: 201301
  2. LAMPRENE [Suspect]
     Indication: OFF LABEL USE
  3. METHYLPREDNISOLONE [Concomitant]
     Indication: RHEUMATOID ARTHRITIS
     Dosage: 8 MG, QD
     Route: 048
  4. PANTOZOL [Concomitant]
     Dosage: 20 MG, QD
     Route: 048
  5. ARCOXIA [Concomitant]
     Dosage: 90 MG, QD

REACTIONS (2)
  - Lung disorder [Not Recovered/Not Resolved]
  - Respiratory failure [Not Recovered/Not Resolved]
